FAERS Safety Report 9128417 (Version 1)
Quarter: 2013Q1

REPORT INFORMATION
  Report Type: Spontaneous
  Country: US (occurrence: US)
  Receive Date: 20130228
  Receipt Date: 20130228
  Transmission Date: 20140127
  Serious: No
  Sender: FDA-Public Use
  Company Number: US-GLAXOSMITHKLINE-A0981731A

PATIENT
  Sex: Female
  Weight: 90.9 kg

DRUGS (8)
  1. IMITREX [Suspect]
     Indication: PRODUCT USED FOR UNKNOWN INDICATION
     Dosage: 100MG AS REQUIRED
     Route: 065
  2. HUMIRA [Concomitant]
  3. AMITRIPTYLINE [Concomitant]
     Indication: MIGRAINE
     Route: 065
     Dates: start: 201112
  4. PROMETHAZINE [Concomitant]
     Indication: NAUSEA
  5. LEVOTHYROXINE [Concomitant]
     Indication: PRODUCT USED FOR UNKNOWN INDICATION
     Route: 065
  6. WARFARIN [Concomitant]
  7. DILTIAZEM [Concomitant]
  8. ESTRADIOL [Concomitant]

REACTIONS (1)
  - Drug ineffective [Unknown]
